FAERS Safety Report 4880069-0 (Version None)
Quarter: 2006Q1

REPORT INFORMATION
  Report Type: 
  Country: None (occurrence: None)
  Receive Date: 20060113
  Receipt Date: 20031125
  Transmission Date: 20060701
  Serious: Yes (Hospitalization)
  Sender: FDA-Public Use
  Company Number: FR-BRISTOL-MYERS SQUIBB COMPANY-12445961

PATIENT
  Age: 79 Year
  Sex: Female

DRUGS (8)
  1. AMIKACIN SULFATE [Suspect]
     Route: 042
     Dates: start: 20030927, end: 20031002
  2. DEPAKENE [Suspect]
     Route: 042
     Dates: start: 20030912, end: 20031002
  3. VANCOCIN HCL [Suspect]
     Dosage: ON 02-OCT-2003, THERAPY WAS INCREASED TO 2 GRAMS DAILY
     Route: 042
     Dates: start: 20030927
  4. TAZOCILLINE [Suspect]
     Route: 042
     Dates: start: 20030927, end: 20031002
  5. DEPAKENE [Concomitant]
     Route: 048
     Dates: start: 20030910, end: 20030912
  6. CLINDAMYCIN HCL [Concomitant]
     Route: 042
     Dates: start: 20030928, end: 20031103
  7. CLAFORAN [Concomitant]
     Indication: ENDOCARDITIS
     Dates: start: 20030814, end: 20030927
  8. TIBERAL [Concomitant]
     Indication: ENDOCARDITIS
     Dates: start: 20030814, end: 20030927

REACTIONS (4)
  - ENCEPHALOPATHY [None]
  - EPILEPSY [None]
  - FALL [None]
  - MUTISM [None]
